FAERS Safety Report 12987940 (Version 1)
Quarter: 2016Q4

REPORT INFORMATION
  Report Type: Spontaneous
  Country: US (occurrence: US)
  Receive Date: 20161130
  Receipt Date: 20161130
  Transmission Date: 20170207
  Serious: Yes (Other)
  Sender: FDA-Public Use
  Company Number: US-ELI_LILLY_AND_COMPANY-US201611008001

PATIENT
  Sex: Male
  Weight: 38.56 kg

DRUGS (8)
  1. VITAMINE C [Concomitant]
     Active Substance: ASCORBIC ACID
     Indication: SERUM FERRITIN
     Dosage: 250 MG, QD
     Route: 048
  2. INTUNIV [Suspect]
     Active Substance: GUANFACINE HYDROCHLORIDE
     Indication: ATTENTION DEFICIT/HYPERACTIVITY DISORDER
     Dosage: UNK, UNKNOWN
     Route: 065
  3. VITAMIN D                          /00107901/ [Concomitant]
     Active Substance: ERGOCALCIFEROL
     Indication: VITAMIN D DECREASED
     Dosage: 2000 IU, QD
     Route: 065
  4. MELATONIN [Concomitant]
     Active Substance: MELATONIN
     Indication: RESTLESS LEGS SYNDROME
     Dosage: UNK, UNKNOWN
     Route: 065
  5. STRATTERA [Suspect]
     Active Substance: ATOMOXETINE HYDROCHLORIDE
     Indication: ATTENTION DEFICIT/HYPERACTIVITY DISORDER
     Dosage: 10 MG, QD
     Route: 065
     Dates: start: 201608
  6. STRATTERA [Suspect]
     Active Substance: ATOMOXETINE HYDROCHLORIDE
     Dosage: 20 MG, QD
     Route: 065
  7. STRATTERA [Suspect]
     Active Substance: ATOMOXETINE HYDROCHLORIDE
     Dosage: 10 MG, QD
     Route: 065
  8. FERRITIN [Concomitant]
     Active Substance: FERRITIN
     Indication: RESTLESS LEGS SYNDROME
     Dosage: UNK, UNKNOWN
     Route: 065

REACTIONS (5)
  - Abnormal behaviour [Unknown]
  - Disturbance in attention [Unknown]
  - Drug ineffective [Unknown]
  - Inappropriate affect [Unknown]
  - Unresponsive to stimuli [Unknown]
